FAERS Safety Report 17003359 (Version 1)
Quarter: 2019Q4

REPORT INFORMATION
  Report Type: Spontaneous
  Country: FR (occurrence: FR)
  Receive Date: 20191107
  Receipt Date: 20191107
  Transmission Date: 20200122
  Serious: Yes (Hospitalization)
  Sender: FDA-Public Use
  Company Number: FR-TEVA-2019-FR-1131732

PATIENT
  Age: 17 Year
  Sex: Female
  Weight: 30 kg

DRUGS (12)
  1. GANCICLOVIR. [Interacting]
     Active Substance: GANCICLOVIR
     Indication: CYTOMEGALOVIRUS VIRAEMIA
     Dosage: 70 MG
     Route: 042
     Dates: start: 20190503, end: 20190515
  2. LANSOPRAZOLE. [Concomitant]
     Active Substance: LANSOPRAZOLE
     Route: 048
  3. TARDYFERON 80 MG, COMPRIME ENROBE [Concomitant]
     Active Substance: FERROUS SULFATE
     Route: 048
     Dates: start: 20190427, end: 20190502
  4. PREDNISONE. [Concomitant]
     Active Substance: PREDNISONE
     Route: 048
     Dates: start: 20190311, end: 20190730
  5. VALGANCICLOVIR. [Suspect]
     Active Substance: VALGANCICLOVIR
     Indication: ANTIVIRAL PROPHYLAXIS
     Dosage: 450 MG
     Route: 048
     Dates: start: 20190308, end: 20190902
  6. TACROLIMUS MONOHYDRATE [Concomitant]
     Active Substance: TACROLIMUS
     Dosage: 2 MCG
     Route: 048
     Dates: start: 20190308
  7. MYCOPHENOLATE MOFETIL. [Interacting]
     Active Substance: MYCOPHENOLATE MOFETIL
     Dosage: 500 MG
     Route: 048
     Dates: start: 20190308
  8. KARDEGIC [Concomitant]
     Active Substance: ASPIRIN DL-LYSINE
     Route: 048
     Dates: start: 20190401, end: 20190725
  9. AMIODARONE [Concomitant]
     Active Substance: AMIODARONE
     Dosage: 200 MG
     Route: 048
     Dates: start: 20190331
  10. CLOPIDOGREL (CHLORHYDRATE DE) [Concomitant]
     Active Substance: CLOPIDOGREL HYDROCHLORIDE
     Route: 048
     Dates: start: 20190401, end: 20190612
  11. VORICONAZOLE. [Concomitant]
     Active Substance: VORICONAZOLE
     Dosage: 400 MG
     Route: 042
     Dates: start: 20190401, end: 20190523
  12. LORAZEPAM. [Concomitant]
     Active Substance: LORAZEPAM
     Route: 048
     Dates: start: 20190416, end: 20190518

REACTIONS (2)
  - Drug interaction [Unknown]
  - Agranulocytosis [Recovered/Resolved]

NARRATIVE: CASE EVENT DATE: 20190506
